FAERS Safety Report 8481264-4 (Version None)
Quarter: 2012Q3

REPORT INFORMATION
  Report Type: 
  Country: None (occurrence: None)
  Receive Date: 20120702
  Receipt Date: 20120627
  Transmission Date: 20120928
  Serious: Yes (Disabling, Other)
  Sender: FDA-Public Use
  Company Number: US-PFIZER INC-2012155187

PATIENT
  Sex: Male
  Weight: 81.633 kg

DRUGS (3)
  1. ACETAMINOPHEN [Concomitant]
     Indication: HEADACHE
     Dosage: UNK
  2. VIAGRA [Suspect]
     Indication: ERECTILE DYSFUNCTION
     Dosage: 100 MG, AS NEEDED
     Dates: start: 20100101, end: 20120101
  3. PRILOSEC [Concomitant]
     Indication: DYSPEPSIA
     Dosage: UNK

REACTIONS (3)
  - PERIPHERAL VASCULAR DISORDER [None]
  - HERNIA [None]
  - BACK DISORDER [None]
